FAERS Safety Report 16121155 (Version 1)
Quarter: 2019Q1

REPORT INFORMATION
  Report Type: Spontaneous
  Country: US (occurrence: US)
  Receive Date: 20190327
  Receipt Date: 20190327
  Transmission Date: 20190418
  Serious: No
  Sender: FDA-Public Use
  Company Number: US-009507513-1902USA010599

PATIENT
  Age: 60 Year
  Sex: Male
  Weight: 108.86 kg

DRUGS (4)
  1. OMEPRAZOLE. [Suspect]
     Active Substance: OMEPRAZOLE
     Dosage: 40MG CAPSULE BY MOUTH ONCE IN THE MORNING
     Route: 048
     Dates: start: 201706
  2. CHANTIX [Suspect]
     Active Substance: VARENICLINE TARTRATE
     Dosage: ONE IN THE MORING AND ONE IN THE EVENING(ALSO REPORTED AS 0.5MG STARTING WEEK)
     Dates: start: 20180903, end: 20180904
  3. ZOCOR [Suspect]
     Active Substance: SIMVASTATIN
     Dosage: 10MG TABLET BY MOUTH ONCE AT NIGHT
     Route: 048
     Dates: start: 201706
  4. CHANTIX [Suspect]
     Active Substance: VARENICLINE TARTRATE
     Indication: TOBACCO USER
     Dosage: TOOK ONE ON EACH DAY(ALSO REPORTED AS 0.5MG STARTING WEEK)
     Dates: start: 20180831, end: 20180902

REACTIONS (1)
  - Back pain [Recovering/Resolving]

NARRATIVE: CASE EVENT DATE: 20180902
